FAERS Safety Report 6667453-X (Version None)
Quarter: 2010Q2

REPORT INFORMATION
  Report Type: 
  Country: None (occurrence: None)
  Receive Date: 20100405
  Receipt Date: 20100329
  Transmission Date: 20101027
  Serious: Yes (Hospitalization, Other)
  Sender: FDA-Public Use
  Company Number: CHPA2010US05888

PATIENT
  Age: 77 Year
  Sex: Male
  Weight: 88.435 kg

DRUGS (2)
  1. MAALOX ANTACID/ANTIGAS MAX QDTABS ASST (NCH) [Suspect]
     Indication: GASTROOESOPHAGEAL REFLUX DISEASE
     Dosage: 3 DF, QD
     Route: 048
  2. PREVACID 24 HR [Concomitant]
     Indication: GASTROOESOPHAGEAL REFLUX DISEASE
     Dosage: 1 DF, QD
     Route: 048
     Dates: start: 20090101

REACTIONS (5)
  - CALCULUS URINARY [None]
  - LITHOTRIPSY [None]
  - NEPHROLITHIASIS [None]
  - OFF LABEL USE [None]
  - RENAL PAIN [None]
